FAERS Safety Report 7905716-8 (Version None)
Quarter: 2011Q4

REPORT INFORMATION
  Report Type: 
  Country: None (occurrence: None)
  Receive Date: 20111108
  Receipt Date: 20111103
  Transmission Date: 20120403
  Serious: Yes (Other)
  Sender: FDA-Public Use
  Company Number: OSCAN-NO-1009S-0245

PATIENT
  Age: 43 Year
  Sex: Female

DRUGS (1)
  1. OMNISCAN [Suspect]
     Indication: PRODUCT USED FOR UNKNOWN INDICATION
     Dosage: 15 ML, SINGLE DOSE, INTRAVENOUS
     Route: 042
     Dates: start: 20050902, end: 20050902

REACTIONS (3)
  - OEDEMA PERIPHERAL [None]
  - PAIN IN EXTREMITY [None]
  - NEPHROGENIC SYSTEMIC FIBROSIS [None]
